FAERS Safety Report 9245491 (Version 1)
Quarter: 2013Q2

REPORT INFORMATION
  Report Type: Spontaneous
  Country: US (occurrence: US)
  Receive Date: 20130422
  Receipt Date: 20130422
  Transmission Date: 20140414
  Serious: No
  Sender: FDA-Public Use
  Company Number: US-PFIZER INC-2013121723

PATIENT
  Age: 53 Year
  Sex: Female
  Weight: 53.52 kg

DRUGS (3)
  1. LEVOXYL [Suspect]
     Indication: GOITRE
     Dosage: 25 UG, 1X/DAY
  2. LEVOXYL [Suspect]
     Dosage: 100 MCG IN WEEKDAYS AND 112 MCG WEEKEND DAILY
     Dates: start: 2012
  3. MELOXICAM [Concomitant]
     Indication: ARTHRITIS
     Dosage: 15 MG, AS NEEDED

REACTIONS (3)
  - Blood cholesterol increased [Unknown]
  - High density lipoprotein decreased [Unknown]
  - Fatigue [Unknown]
